FAERS Safety Report 23750750 (Version 2)
Quarter: 2024Q2

REPORT INFORMATION
  Report Type: Other
  Country: CA (occurrence: CA)
  Receive Date: 20240417
  Receipt Date: 20240531
  Transmission Date: 20240716
  Serious: Yes (Other)
  Sender: FDA-Public Use
  Company Number: CA-APOTEX-2024AP004640

PATIENT
  Sex: Male

DRUGS (1)
  1. LENALIDOMIDE [Suspect]
     Active Substance: LENALIDOMIDE
     Indication: Plasma cell myeloma refractory
     Dosage: 10 MILLIGRAM, Q.H.S. (TAKE 1 CAPSULE (10MG) BY MOUTH NIGHTLY AT BEDTIME - SWALLOW CAPSULES WHOLE)
     Route: 048
     Dates: start: 20230324

REACTIONS (3)
  - Lower respiratory tract infection [Unknown]
  - Illness [Unknown]
  - Peripheral swelling [Unknown]

NARRATIVE: CASE EVENT DATE: 20240101
